FAERS Safety Report 10179566 (Version 1)
Quarter: 2014Q2

REPORT INFORMATION
  Report Type: Spontaneous
  Country: US (occurrence: None)
  Receive Date: 20140515
  Receipt Date: 20140515
  Transmission Date: 20141212
  Serious: Yes (Hospitalization)
  Sender: FDA-Public Use
  Company Number: UTC-048399

PATIENT
  Age: 47 Year
  Sex: Male
  Weight: 104.3 kg

DRUGS (1)
  1. REMODULIN [Suspect]
     Indication: COR PULMONALE CHRONIC
     Dosage: (0.055 UG/KG, 1 IN 1 MIN)
     Route: 058
     Dates: start: 20130909, end: 20140428

REACTIONS (1)
  - Gastrointestinal haemorrhage [None]
